FAERS Safety Report 14194953 (Version 2)
Quarter: 2018Q3

REPORT INFORMATION
  Report Type: Spontaneous
  Country: GR (occurrence: GR)
  Receive Date: 20171116
  Receipt Date: 20180731
  Transmission Date: 20181010
  Serious: Yes (Life-Threatening, Hospitalization, Disabling, Other)
  Sender: FDA-Public Use
  Company Number: GR-PFIZER INC-2017488422

PATIENT
  Age: 79 Year
  Sex: Female

DRUGS (5)
  1. ATORVASTATIN CALCIUM. [Suspect]
     Active Substance: ATORVASTATIN CALCIUM
     Dosage: 20 MG, 1X/DAY
  2. FUSIDIC ACID [Interacting]
     Active Substance: FUSIDIC ACID
     Indication: SKIN BACTERIAL INFECTION
  3. CLINDAMYCIN. [Concomitant]
     Active Substance: CLINDAMYCIN
     Indication: DERMATITIS
     Dosage: 300 MG, 3X/DAY
  4. SODIUM BICARBONATE. [Concomitant]
     Active Substance: SODIUM BICARBONATE
  5. FUSIDIC ACID [Interacting]
     Active Substance: FUSIDIC ACID
     Indication: DERMATITIS
     Dosage: 250 MG, 4X/DAY

REACTIONS (2)
  - Drug interaction [Recovered/Resolved]
  - Rhabdomyolysis [Recovered/Resolved]
